FAERS Safety Report 23583650 (Version 1)
Quarter: 2024Q1

REPORT INFORMATION
  Report Type: Spontaneous
  Country: DE (occurrence: DE)
  Receive Date: 20240301
  Receipt Date: 20240301
  Transmission Date: 20240409
  Serious: Yes (Other)
  Sender: FDA-Public Use
  Company Number: None

PATIENT
  Age: 31 Year
  Sex: Male

DRUGS (1)
  1. FINASTERIDE [Suspect]
     Active Substance: FINASTERIDE
     Indication: Alopecia
     Dosage: UNK
     Route: 065

REACTIONS (7)
  - Erectile dysfunction [Not Recovered/Not Resolved]
  - Genital atrophy [Not Recovered/Not Resolved]
  - Impaired quality of life [Unknown]
  - Depression [Not Recovered/Not Resolved]
  - Genital pain [Not Recovered/Not Resolved]
  - Loss of libido [Not Recovered/Not Resolved]
  - Product communication issue [Unknown]
